FAERS Safety Report 6483632-9 (Version None)
Quarter: 2009Q4

REPORT INFORMATION
  Report Type: 
  Country: None (occurrence: None)
  Receive Date: 20091209
  Receipt Date: 20091130
  Transmission Date: 20100525
  Serious: No
  Sender: FDA-Public Use
  Company Number: PHHY2009FR50858

PATIENT
  Sex: Female
  Weight: 60 kg

DRUGS (3)
  1. RASILEZ [Suspect]
     Dosage: 150 MG, UNK
     Dates: start: 20091015, end: 20091025
  2. RASILEZ [Suspect]
     Dosage: 300 MG, UNK
     Dates: end: 20091025
  3. LEVOTHYROXINE SODIUM [Concomitant]
     Dosage: 50 UG/DAY

REACTIONS (3)
  - EYE OEDEMA [None]
  - FACE OEDEMA [None]
  - FLUSHING [None]
